FAERS Safety Report 4385063-4 (Version None)
Quarter: 2004Q2

REPORT INFORMATION
  Report Type: 
  Country: None (occurrence: None)
  Receive Date: 20040624
  Receipt Date: 20040624
  Transmission Date: 20050107
  Serious: Yes (Other)
  Sender: FDA-Public Use
  Company Number: None

PATIENT
  Sex: Female
  Weight: 51 kg

DRUGS (1)
  1. DEFEROXAMINE 500 MG VIALS ABBOTT [Suspect]
     Indication: THALASSAEMIA
     Dosage: 3000 MG SQ Q DAY
     Route: 058

REACTIONS (2)
  - INJECTION SITE SWELLING [None]
  - PHARMACEUTICAL PRODUCT COMPLAINT [None]
